FAERS Safety Report 14900686 (Version 7)
Quarter: 2021Q2

REPORT INFORMATION
  Report Type: Spontaneous
  Country: US (occurrence: US)
  Receive Date: 20180516
  Receipt Date: 20210629
  Transmission Date: 20210716
  Serious: No
  Sender: FDA-Public Use
  Company Number: US-PFIZER INC-2018198570

PATIENT
  Age: 12 Year
  Sex: Male

DRUGS (6)
  1. SOMATROPIN. [Suspect]
     Active Substance: SOMATROPIN
     Dosage: UNK
  2. FOCALIN XR [Concomitant]
     Active Substance: DEXMETHYLPHENIDATE HYDROCHLORIDE
     Indication: PSYCHOMOTOR HYPERACTIVITY
     Dosage: 20 MG, DAILY (WAS IN LOWER DOSES BUT HAD INCREASED WITH AGE)
  3. GENOTROPIN [Suspect]
     Active Substance: SOMATROPIN
     Dosage: 1.8 MG, DAILY
  4. GENOTROPIN [Suspect]
     Active Substance: SOMATROPIN
     Indication: GROWTH HORMONE DEFICIENCY
     Dosage: 2.2 MG, DAILY
     Dates: start: 20180426
  5. GENOTROPIN [Suspect]
     Active Substance: SOMATROPIN
     Dosage: 2.2 MG, DAILY
     Route: 058
     Dates: start: 20180426
  6. GENOTROPIN [Suspect]
     Active Substance: SOMATROPIN
     Indication: GROWTH HORMONE DEFICIENCY
     Dosage: UNK, ONCE A DAY
     Dates: start: 20180426

REACTIONS (8)
  - Device breakage [Unknown]
  - Device information output issue [Unknown]
  - Device leakage [Unknown]
  - Needle issue [Not Recovered/Not Resolved]
  - Injection site bruising [Not Recovered/Not Resolved]
  - Product dose omission issue [Unknown]
  - Injection site pain [Not Recovered/Not Resolved]
  - Incorrect dose administered [Unknown]

NARRATIVE: CASE EVENT DATE: 20180426
